FAERS Safety Report 4825420-2 (Version None)
Quarter: 2005Q4

REPORT INFORMATION
  Report Type: 
  Country: None (occurrence: None)
  Receive Date: 20051111
  Receipt Date: 20051102
  Transmission Date: 20060501
  Serious: Yes (Other)
  Sender: FDA-Public Use
  Company Number: NL-JNJFOC-20051002667

PATIENT
  Age: 7 Week
  Sex: Male

DRUGS (1)
  1. MICONAZOLE [Suspect]
     Dosage: 0.5 MEASURING SPOON
     Route: 048

REACTIONS (3)
  - APNOEA [None]
  - CYANOSIS [None]
  - HYPOTONIA [None]
